FAERS Safety Report 15201406 (Version 2)
Quarter: 2018Q4

REPORT INFORMATION
  Report Type: Spontaneous
  Country: CH (occurrence: CH)
  Receive Date: 20180726
  Receipt Date: 20181220
  Transmission Date: 20190204
  Serious: Yes (Hospitalization, Other)
  Sender: FDA-Public Use
  Company Number: CH-TEVA-2018-CH-927800

PATIENT
  Age: 53 Year
  Sex: Male

DRUGS (3)
  1. FLUDARABINE TEVA [Suspect]
     Active Substance: FLUDARABINE PHOSPHATE
     Indication: METASTATIC MALIGNANT MELANOMA
     Dosage: LAST DOSE PRIOR TO SAE: 09-JUN-2018.
     Route: 042
     Dates: start: 20180605
  2. ENDOXAN [Suspect]
     Active Substance: CYCLOPHOSPHAMIDE
     Indication: METASTATIC MALIGNANT MELANOMA
     Dosage: LAST DOSE PRIOR TO SAE: 06-JUN-2018.
     Route: 042
     Dates: start: 20180605
  3. INTERLEUKIN-2 [Suspect]
     Active Substance: ALDESLEUKIN
     Indication: METASTATIC MALIGNANT MELANOMA
     Dosage: DOSE: 82.8X10 6 UL; LAST DOSE PRIOR TO SAE: 13-JUN-2018.
     Route: 042
     Dates: start: 20180612

REACTIONS (2)
  - Guillain-Barre syndrome [Recovered/Resolved with Sequelae]
  - Cytomegalovirus infection [Unknown]

NARRATIVE: CASE EVENT DATE: 20180701
